FAERS Safety Report 7030349-8 (Version None)
Quarter: 2010Q4

REPORT INFORMATION
  Report Type: 
  Country: None (occurrence: None)
  Receive Date: 20101006
  Receipt Date: 20100928
  Transmission Date: 20110411
  Serious: Yes (Other)
  Sender: FDA-Public Use
  Company Number: CA-US-EMD SERONO, INC.-230501J08CAN

PATIENT
  Sex: Female

DRUGS (1)
  1. REBIF [Suspect]
     Indication: RELAPSING-REMITTING MULTIPLE SCLEROSIS
     Route: 058
     Dates: start: 20040721

REACTIONS (5)
  - DRUG ADMINISTRATION ERROR [None]
  - INJECTION SITE HAEMORRHAGE [None]
  - MONOPARESIS [None]
  - OPTIC NEURITIS [None]
  - WRONG TECHNIQUE IN DRUG USAGE PROCESS [None]
